FAERS Safety Report 15099194 (Version 1)
Quarter: 2018Q2

REPORT INFORMATION
  Report Type: Spontaneous
  Country: US (occurrence: US)
  Receive Date: 20180611
  Receipt Date: 20180611
  Transmission Date: 20180711
  Serious: Yes (Other)
  Sender: FDA-Public Use
  Company Number: None

PATIENT
  Age: 39 Year
  Sex: Male
  Weight: 93.4 kg

DRUGS (1)
  1. INFLECTRA [Suspect]
     Active Substance: INFLIXIMAB-DYYB
     Indication: ANKYLOSING SPONDYLITIS
     Dosage: ?          OTHER FREQUENCY:EVERY 5 WEEK;?
     Route: 041
     Dates: start: 20170918, end: 20171023

REACTIONS (9)
  - Back pain [None]
  - Swelling [None]
  - Product substitution issue [None]
  - Pruritus [None]
  - Condition aggravated [None]
  - Joint noise [None]
  - Paraesthesia [None]
  - Drug effect decreased [None]
  - Therapy non-responder [None]

NARRATIVE: CASE EVENT DATE: 20170918
